FAERS Safety Report 9192979 (Version 2)
Quarter: 2013Q2

REPORT INFORMATION
  Report Type: Spontaneous
  Country: JP (occurrence: JP)
  Receive Date: 20130327
  Receipt Date: 20130405
  Transmission Date: 20140414
  Serious: Yes (Other)
  Sender: FDA-Public Use
  Company Number: JP-ASTRAZENECA-2013SE11194

PATIENT
  Sex: Female

DRUGS (1)
  1. ZOLADEX [Suspect]
     Indication: ENDOMETRIOSIS
     Route: 058

REACTIONS (2)
  - Exposure during pregnancy [Unknown]
  - Abortion [Unknown]
